FAERS Safety Report 5869031-9 (Version None)
Quarter: 2008Q3

REPORT INFORMATION
  Report Type: 
  Country: None (occurrence: None)
  Receive Date: 20080903
  Receipt Date: 20080825
  Transmission Date: 20090109
  Serious: Yes (Other)
  Sender: FDA-Public Use
  Company Number: A0745715B

PATIENT
  Sex: Female

DRUGS (3)
  1. LAMICTAL [Suspect]
     Indication: EPILEPSY
     Dosage: 250MG PER DAY
  2. PHENOBARBITAL TAB [Concomitant]
     Indication: EPILEPSY
     Dosage: 120MG PER DAY
  3. VITAMIN TAB [Concomitant]

REACTIONS (3)
  - CLEFT PALATE [None]
  - DRUG EXPOSURE DURING PREGNANCY [None]
  - FOETAL-MATERNAL HAEMORRHAGE [None]
